FAERS Safety Report 15569741 (Version 5)
Quarter: 2020Q1

REPORT INFORMATION
  Report Type: Spontaneous
  Country: US (occurrence: US)
  Receive Date: 20181031
  Receipt Date: 20200107
  Transmission Date: 20200409
  Serious: Yes (Other)
  Sender: FDA-Public Use
  Company Number: US-PFIZER INC-2018433912

PATIENT
  Age: 53 Year
  Sex: Female

DRUGS (1)
  1. GENOTROPIN MQ [Suspect]
     Active Substance: SOMATROPIN
     Dosage: 1.2 MG, DAILY
     Dates: start: 20090617

REACTIONS (8)
  - Nerve injury [Unknown]
  - Product dispensing error [Unknown]
  - Product dose omission [Unknown]
  - Back pain [Unknown]
  - Fatigue [Unknown]
  - Blood growth hormone decreased [Unknown]
  - Tri-iodothyronine decreased [Unknown]
  - Malaise [Unknown]
